FAERS Safety Report 6969285-1 (Version None)
Quarter: 2010Q3

REPORT INFORMATION
  Report Type: 
  Country: None (occurrence: None)
  Receive Date: 20100907
  Receipt Date: 20100831
  Transmission Date: 20110219
  Serious: Yes (Other)
  Sender: FDA-Public Use
  Company Number: US-BAYER-201019663BCC

PATIENT
  Age: 49 Year
  Sex: Female
  Weight: 109 kg

DRUGS (2)
  1. ALEVE [Suspect]
     Indication: ARTHRALGIA
     Dosage: UNIT DOSE: 220 MG
     Route: 048
     Dates: start: 20100705, end: 20100828
  2. ASPIRIN [Concomitant]
     Route: 048
     Dates: end: 20100709

REACTIONS (3)
  - BLISTER [None]
  - BLOOD BLISTER [None]
  - RASH MACULAR [None]
